FAERS Safety Report 14243453 (Version 2)
Quarter: 2017Q4

REPORT INFORMATION
  Report Type: Spontaneous
  Country: US (occurrence: US)
  Receive Date: 20171201
  Receipt Date: 20171211
  Transmission Date: 20180321
  Serious: Yes (Other)
  Sender: FDA-Public Use
  Company Number: US-GLAXOSMITHKLINE-US2017183074

PATIENT
  Sex: Male

DRUGS (1)
  1. PARODONTAX [Suspect]
     Active Substance: STANNOUS FLUORIDE
     Indication: PRODUCT USED FOR UNKNOWN INDICATION
     Dosage: UNK

REACTIONS (10)
  - Chemical burn of gastrointestinal tract [Unknown]
  - Injury [Unknown]
  - Headache [Unknown]
  - Hypoaesthesia [Unknown]
  - Pain [Unknown]
  - Oral surgery [Unknown]
  - Seizure [Unknown]
  - Tooth loss [Unknown]
  - Toothache [Unknown]
  - Oral discomfort [Unknown]
